FAERS Safety Report 8478025 (Version 4)
Quarter: 2012Q4

REPORT INFORMATION
  Report Type: Report from Study
  Country: US (occurrence: US)
  Receive Date: 20120327
  Receipt Date: 20121120
  Transmission Date: 20130627
  Serious: Yes (Hospitalization)
  Sender: FDA-Public Use
  Company Number: US-BRISTOL-MYERS SQUIBB COMPANY-16461337

PATIENT
  Age: 71 Year
  Sex: Male
  Weight: 83.9 kg

DRUGS (16)
  1. PACLITAXEL [Suspect]
     Indication: NON-SMALL CELL LUNG CANCER
     Dosage: received last dose of 418mg
     Route: 042
     Dates: start: 20120116, end: 20120206
  2. CARBOPLATIN [Suspect]
     Indication: NON-SMALL CELL LUNG CANCER
     Dosage: received last dose at 726mg
     Route: 042
     Dates: start: 20120116, end: 20120206
  3. ASPIRIN [Concomitant]
  4. LEVETIRACETAM [Concomitant]
  5. ZOLPIDEM [Concomitant]
  6. HYDROCODONE + ACETAMINOPHEN [Concomitant]
  7. CITALOPRAM [Concomitant]
  8. METOPROLOL [Concomitant]
  9. LISINOPRIL [Concomitant]
  10. PREDNISONE [Concomitant]
  11. TRIAMTERENE + HCTZ [Concomitant]
  12. PRAVASTATINE [Concomitant]
  13. BACLOFEN [Concomitant]
  14. TEMAZEPAM [Concomitant]
  15. ALENDRONATE [Concomitant]
  16. TRAMADOL [Concomitant]

REACTIONS (3)
  - Gastrointestinal haemorrhage [Recovered/Resolved with Sequelae]
  - Duodenal ulcer [Recovered/Resolved with Sequelae]
  - Anaemia [Recovered/Resolved]
